FAERS Safety Report 7056975-8 (Version None)
Quarter: 2010Q4

REPORT INFORMATION
  Report Type: 
  Country: None (occurrence: None)
  Receive Date: 20101022
  Receipt Date: 20101015
  Transmission Date: 20110411
  Serious: Yes (Other)
  Sender: FDA-Public Use
  Company Number: US-RB-016511-10

PATIENT
  Sex: Female

DRUGS (2)
  1. SUBOXONE TABLETS [Suspect]
     Indication: DRUG DEPENDENCE
     Route: 060
     Dates: start: 20100101, end: 20100601
  2. SUBUTEX TABLETS [Suspect]
     Indication: DRUG DEPENDENCE
     Dosage: DOSES VARY FROM 8 - 12 MG
     Route: 060
     Dates: start: 20100601

REACTIONS (5)
  - ABORTION SPONTANEOUS [None]
  - DRUG EXPOSURE DURING PREGNANCY [None]
  - PAIN [None]
  - PREMATURE RUPTURE OF MEMBRANES [None]
  - VAGINAL HAEMORRHAGE [None]
